FAERS Safety Report 25169817 (Version 1)
Quarter: 2025Q2

REPORT INFORMATION
  Report Type: Spontaneous
  Country: ES (occurrence: A1)
  Receive Date: 20250407
  Receipt Date: 20250407
  Transmission Date: 20250717
  Serious: Yes (Hospitalization, Other)
  Sender: BRECKENRIDGE
  Company Number: A1-Breckenridge Pharmaceutical, Inc.-2174430

PATIENT
  Sex: Female

DRUGS (7)
  1. OMEPRAZOLE [Suspect]
     Active Substance: OMEPRAZOLE
  2. CANAGLIFLOZIN [Suspect]
     Active Substance: CANAGLIFLOZIN
  3. APIXABAN [Suspect]
     Active Substance: APIXABAN
  4. NOVORAPID [Concomitant]
     Active Substance: INSULIN ASPART
  5. ALBUTEROL [Concomitant]
     Active Substance: ALBUTEROL
  6. LANTUS [Suspect]
     Active Substance: INSULIN GLARGINE
  7. ATORVASTATIN CALCIUM [Concomitant]
     Active Substance: ATORVASTATIN CALCIUM

REACTIONS (1)
  - Diabetic ketoacidosis [Unknown]
